FAERS Safety Report 5933604-5 (Version None)
Quarter: 2008Q4

REPORT INFORMATION
  Report Type: 
  Country: None (occurrence: None)
  Receive Date: 20081010
  Receipt Date: 20080505
  Transmission Date: 20090506
  Serious: Yes (Other)
  Sender: FDA-Public Use
  Company Number: 2008US001282

PATIENT
  Age: 39 Year
  Sex: Male
  Weight: 74.8 kg

DRUGS (13)
  1. AMBISOME [Suspect]
     Indication: HISTOPLASMOSIS
     Dosage: 450 MG, IV NOS
     Route: 042
     Dates: start: 20080125
  2. ERAXIS [Suspect]
     Indication: FUNGAL INFECTION
     Dosage: 200 MG, UID/QD, IV NOS : 100 MG, UID/QD, IV NOS
     Route: 042
     Dates: start: 20080122, end: 20080125
  3. ERAXIS [Suspect]
     Indication: FUNGAL INFECTION
     Dosage: 200 MG, UID/QD, IV NOS : 100 MG, UID/QD, IV NOS
     Route: 042
     Dates: start: 20080118
  4. VANCOMYCIN HYDROCHLORIDE [Concomitant]
  5. ZOSYN [Concomitant]
  6. LEVOPHED [Concomitant]
  7. PROMETHAZINE [Concomitant]
  8. MORPHINE [Concomitant]
  9. PROTONIX [Concomitant]
  10. HEPARIN [Concomitant]
  11. TYLENOL [Concomitant]
  12. BACTRIM DS [Concomitant]
  13. AZITHROMYCIN [Concomitant]

REACTIONS (1)
  - RENAL FAILURE ACUTE [None]
